FAERS Safety Report 21855532 (Version 1)
Quarter: 2023Q1

REPORT INFORMATION
  Report Type: Spontaneous
  Country: GB (occurrence: GB)
  Receive Date: 20230112
  Receipt Date: 20230112
  Transmission Date: 20230417
  Serious: Yes (Other)
  Sender: FDA-Public Use
  Company Number: GB-ABBVIE-4219320

PATIENT

DRUGS (6)
  1. METHOTREXATE SODIUM [Suspect]
     Active Substance: METHOTREXATE SODIUM
     Route: 050
     Dates: start: 201811, end: 202004
  2. ADALIMUMAB [Suspect]
     Active Substance: ADALIMUMAB
     Indication: Crohn^s disease
     Route: 050
     Dates: start: 201802, end: 201908
  3. USTEKINUMAB [Concomitant]
     Active Substance: USTEKINUMAB
     Route: 050
     Dates: start: 202010, end: 202210
  4. USTEKINUMAB [Concomitant]
     Active Substance: USTEKINUMAB
     Route: 050
     Dates: start: 202210
  5. VEDOLIZUMAB [Concomitant]
     Active Substance: VEDOLIZUMAB
     Dosage: TIME INTERVAL: 0.16 WK
     Dates: start: 202002, end: 202010
  6. VEDOLIZUMAB [Concomitant]
     Active Substance: VEDOLIZUMAB
     Dates: start: 201908, end: 202002

REACTIONS (7)
  - Large intestinal stenosis [Unknown]
  - Gastric ulcer [Unknown]
  - Drug ineffective [Unknown]
  - Therapeutic product effect incomplete [Unknown]
  - Gastrointestinal mucosa hyperaemia [Unknown]
  - Injection site pain [Unknown]
  - Anal skin tags [Unknown]

NARRATIVE: CASE EVENT DATE: 20220722
